FAERS Safety Report 17343389 (Version 1)
Quarter: 2020Q1

REPORT INFORMATION
  Report Type: Spontaneous
  Country: US (occurrence: US)
  Receive Date: 20200129
  Receipt Date: 20200129
  Transmission Date: 20200409
  Serious: No
  Sender: FDA-Public Use
  Company Number: US-ALLERGAN-1931634US

PATIENT
  Age: 62 Year

DRUGS (3)
  1. JUVEDERM ULTRA PLUS [Concomitant]
     Active Substance: HYALURONIC ACID\LIDOCAINE HYDROCHLORIDE
     Indication: SKIN WRINKLING
     Dosage: ONE FULL UNIT, SINGLE
     Dates: start: 20190418, end: 20190418
  2. PLAQUENIL [Concomitant]
     Active Substance: HYDROXYCHLOROQUINE SULFATE
     Indication: PRODUCT USED FOR UNKNOWN INDICATION
  3. BOTOX [Suspect]
     Active Substance: ONABOTULINUMTOXINA
     Indication: SKIN WRINKLING
     Dosage: 25 UNITS, SINGLE
     Dates: start: 20190418, end: 20190418

REACTIONS (4)
  - Skin swelling [Unknown]
  - Off label use [Unknown]
  - Injection site rash [Recovered/Resolved]
  - Drug ineffective [Unknown]
